FAERS Safety Report 19534237 (Version 3)
Quarter: 2021Q3

REPORT INFORMATION
  Report Type: Spontaneous
  Country: GB (occurrence: GB)
  Receive Date: 20210713
  Receipt Date: 20210923
  Transmission Date: 20211014
  Serious: Yes (Hospitalization)
  Sender: FDA-Public Use
  Company Number: GB-ACCORD-230948

PATIENT
  Age: 8 Year
  Sex: Male
  Weight: 21.8 kg

DRUGS (27)
  1. CHLORPHENAMINE/CHLORPHENAMINE MALEATE/CHLORPHENAMINE RESINATE/CHLORPHENAMINE TANNATE [Concomitant]
     Active Substance: CHLORPHENIRAMINE
     Indication: HYPERSENSITIVITY
     Dosage: 4 MG (AS REQUIRED)
     Route: 042
     Dates: start: 20210329
  2. DEXAMETHASONE. [Concomitant]
     Active Substance: DEXAMETHASONE
     Indication: ANALGESIC THERAPY
     Dosage: 4 MG (2 MG,2 IN 1 DAY)
     Route: 042
     Dates: start: 20210406
  3. DEXAMETHASONE. [Concomitant]
     Active Substance: DEXAMETHASONE
     Indication: CHEMOTHERAPY SIDE EFFECT PROPHYLAXIS
     Dosage: 4 MG, QD
     Route: 042
     Dates: start: 20210531, end: 20210606
  4. LIPEGFILGRASTIM [Concomitant]
     Active Substance: LIPEGFILGRASTIM
     Indication: BLOOD DISORDER PROPHYLAXIS
     Dosage: 2.5 MG (5 MG, 3 IN 1 DAY)
     Route: 058
     Dates: start: 20210509, end: 20210510
  5. COLECALCIFEROL [Concomitant]
     Active Substance: CHOLECALCIFEROL
     Indication: VITAMIN SUPPLEMENTATION
     Dosage: UNK (1 CAPSULE,3 IN 1 WEEK)
     Route: 048
     Dates: start: 20210331
  6. LEVOMEPROMAZINE/LEVOMEPROMAZINE EMBONATE/LEVOMEPROMAZINE HYDROCHLORIDE/LEVOMEPROMAZINE MALEATE [Concomitant]
     Indication: ANTIEMETIC SUPPORTIVE CARE
     Dosage: 2.2 MG (1.1 MG, 2 IN 1 DAY)
     Route: 042
     Dates: start: 20210601
  7. CYCLOPHOSPHAMIDE. [Suspect]
     Active Substance: CYCLOPHOSPHAMIDE
     Indication: PRODUCT USED FOR UNKNOWN INDICATION
     Dosage: 210 MG (1 IN 1 DAY)
     Route: 042
     Dates: start: 20210504
  8. VENETOCLAX. [Suspect]
     Active Substance: VENETOCLAX
     Indication: NEOPLASM MALIGNANT
     Dosage: 350 MG (350 MG? 2) (8 DAYS)
     Route: 048
     Dates: start: 20210330, end: 20210407
  9. ONDANSETRON [Concomitant]
     Active Substance: ONDANSETRON
     Indication: ANTIEMETIC SUPPORTIVE CARE
     Dosage: 12 MG (4 MG,3 IN 1 DAY)
     Route: 042
     Dates: start: 20210330
  10. MORPHINE/MORPHINE HYDROCHLORIDE/MORPHINE SULFATE/MORPHINE TARTRATE [Concomitant]
     Active Substance: MORPHINE\MORPHINE HYDROCHLORIDE\MORPHINE SULFATE\MORPHINE TARTRATE
     Indication: PAIN
     Dosage: 10 MG (AS REQUIRED)
     Route: 048
     Dates: start: 20210509
  11. ALLOPURINOL/ALLOPURINOL SODIUM [Concomitant]
     Active Substance: ALLOPURINOL SODIUM
     Indication: TUMOUR LYSIS SYNDROME
     Dosage: 240 MG (1 IN 1 DAY)
     Route: 048
     Dates: start: 20210330, end: 20210404
  12. CHLORPHENAMINE/CHLORPHENAMINE MALEATE/CHLORPHENAMINE RESINATE/CHLORPHENAMINE TANNATE [Concomitant]
     Active Substance: CHLORPHENIRAMINE
     Indication: ALLERGIC TRANSFUSION REACTION
     Dosage: 4 MG (AS REQUIRED)
     Route: 048
     Dates: start: 20210601
  13. METOCLOPRAMIDE/METOCLOPRAMIDE GLYCYRRHETINATE/METOCLOPRAMIDE HYDROCHLORIDE [Concomitant]
     Indication: NAUSEA
     Dosage: 15 MG (5 MG, 3 IN 1 DAY)
     Route: 048
     Dates: start: 20210508
  14. DOCUSATE/DOCUSATE CALCIUM/DOCUSATE POTASSIUM/DOCUSATE SODIUM [Concomitant]
     Active Substance: DOCUSATE
     Indication: CONSTIPATION PROPHYLAXIS
     Dosage: 300 MG (100 MG, 3 IN 1 DAY)
     Route: 048
     Dates: start: 20210508
  15. HEPARIN [Concomitant]
     Active Substance: HEPARIN SODIUM
     Indication: PRODUCT USED FOR UNKNOWN INDICATION
     Dosage: 10 UNITS/ML (3 IN 1 DAY)
     Route: 042
     Dates: start: 20210329
  16. SODIUM CHLORIDE. [Concomitant]
     Active Substance: SODIUM CHLORIDE
     Indication: TUMOUR LYSIS SYNDROME
     Dosage: UNK (375 ML)
     Route: 042
     Dates: start: 20210330, end: 20210407
  17. TINZAPARIN/TINZAPARIN SODIUM [Concomitant]
     Active Substance: TINZAPARIN SODIUM
     Indication: ANTICOAGULANT THERAPY
     Dosage: 6000 IU (1 DAY)
     Route: 058
     Dates: start: 20210526
  18. GABAPENTIN. [Concomitant]
     Active Substance: GABAPENTIN
     Indication: PAIN
     Dosage: 600 MG (200 MG, 3 IN 1 DAY)
     Route: 048
     Dates: start: 20210329
  19. MACROGOL/POTASSIUM CHLORIDE/SODIUM BICARBONATE/SODIUM CHLORIDE [Concomitant]
     Active Substance: POLYETHYLENE GLYCOL\POTASSIUM CHLORIDE\SODIUM BICARBONATE\SODIUM CHLORIDE
     Indication: CONSTIPATION
     Dosage: UNK (1?2 SACHETS AS REQUIRED)
     Route: 048
     Dates: start: 20210517
  20. SEVREDOL [Concomitant]
     Active Substance: MORPHINE
     Dosage: 10 MG, PRN
     Route: 048
     Dates: start: 20210806
  21. TOPOTECAN [Suspect]
     Active Substance: TOPOTECAN HYDROCHLORIDE
     Indication: NEOPLASM MALIGNANT
     Dosage: 0.64 MG (1 IN 1 DAY)
     Route: 042
     Dates: start: 20210401, end: 20210405
  22. SULFAMETHOXAZOLE/TRIMETHOPRIM [Concomitant]
     Active Substance: SULFAMETHOXAZOLE\TRIMETHOPRIM
     Indication: ANTIBIOTIC PROPHYLAXIS
     Dosage: 360 MG (1 IN 1 DAY)
     Route: 048
     Dates: start: 20210331
  23. CYCLIZINE [Concomitant]
     Active Substance: CYCLIZINE
     Indication: ANTIEMETIC SUPPORTIVE CARE
     Dosage: 75 MG (25 MG,3 IN 1 DAY)
     Route: 042
     Dates: start: 20210330
  24. CYCLIZINE [Concomitant]
     Active Substance: CYCLIZINE
     Dosage: 75 MG (25 MG,3 IN 1 DAY)
     Route: 048
     Dates: start: 20210602
  25. MIDAZOLAM/MIDAZOLAM HYDROCHLORIDE/MIDAZOLAM MALEATE [Concomitant]
     Active Substance: MIDAZOLAM HYDROCHLORIDE
     Indication: PAIN
     Dosage: 2 MG (AS REQUIRED)
     Route: 048
     Dates: start: 20210321
  26. OMEPRAZOLE/OMEPRAZOLE MAGNESIUM/OMEPRAZOLE SODIUM [Concomitant]
     Active Substance: OMEPRAZOLE
     Indication: DYSPEPSIA
     Dosage: 20 MG (20 MG,1 IN 1 DAY)
     Route: 048
     Dates: start: 20210310
  27. HYOSCINE [Concomitant]
     Active Substance: SCOPOLAMINE
     Indication: VOMITING
     Dosage: 1 MG, PRN
     Route: 061
     Dates: start: 20210601

REACTIONS (10)
  - Febrile neutropenia [Not Recovered/Not Resolved]
  - Cellulitis [Unknown]
  - Palpitations [Unknown]
  - White blood cell count decreased [Unknown]
  - Groin pain [Unknown]
  - Vomiting [Unknown]
  - Product use issue [Unknown]
  - Nodule [Unknown]
  - Ear pain [Unknown]
  - Oropharyngeal pain [Unknown]

NARRATIVE: CASE EVENT DATE: 20210609
